FAERS Safety Report 23312331 (Version 1)
Quarter: 2023Q4

REPORT INFORMATION
  Report Type: Spontaneous
  Country: US (occurrence: US)
  Receive Date: 20231219
  Receipt Date: 20231219
  Transmission Date: 20240110
  Serious: No
  Sender: FDA-Public Use
  Company Number: US-OPELLA-2023OHG016520

PATIENT
  Sex: Female

DRUGS (1)
  1. ASPERCREME MAX NO MESS ROLL ON [Suspect]
     Active Substance: MENTHOL
     Indication: Product used for unknown indication

REACTIONS (2)
  - No adverse event [Unknown]
  - Drug ineffective [Unknown]
